FAERS Safety Report 17277447 (Version 1)
Quarter: 2020Q1

REPORT INFORMATION
  Report Type: Spontaneous
  Country: US (occurrence: US)
  Receive Date: 20191227
  Receipt Date: 20191227
  Transmission Date: 20200409
  Serious: No
  Sender: FDA-Public Use
  Company Number: None

PATIENT
  Age: 64 Year
  Sex: Female

DRUGS (1)
  1. AFINITOR [Suspect]
     Active Substance: EVEROLIMUS
     Route: 048
     Dates: start: 201907, end: 201912

REACTIONS (7)
  - Malignant neoplasm progression [None]
  - Swelling [None]
  - Urticaria [None]
  - Pruritus [None]
  - Hypersensitivity [None]
  - Peripheral swelling [None]
  - Weight decreased [None]

NARRATIVE: CASE EVENT DATE: 20191227
